FAERS Safety Report 6968899-2 (Version None)
Quarter: 2010Q3

REPORT INFORMATION
  Report Type: 
  Country: None (occurrence: None)
  Receive Date: 20100907
  Receipt Date: 20100826
  Transmission Date: 20110219
  Serious: Yes (Other)
  Sender: FDA-Public Use
  Company Number: US-PFIZER INC-2010108552

PATIENT
  Sex: Female
  Weight: 49.887 kg

DRUGS (3)
  1. XALATAN [Suspect]
     Indication: GLAUCOMA
     Dosage: 1 DROP IN EACH EYE DAILY
     Route: 047
     Dates: start: 19940101
  2. TRUSOPT [Concomitant]
     Dosage: UNK
  3. RESTASIS [Concomitant]
     Dosage: UNK

REACTIONS (3)
  - CATARACT [None]
  - HYPOTENSION [None]
  - VISUAL ACUITY REDUCED [None]
